FAERS Safety Report 7885229-2 (Version None)
Quarter: 2011Q4

REPORT INFORMATION
  Report Type: 
  Country: None (occurrence: None)
  Receive Date: 20111102
  Receipt Date: 20111025
  Transmission Date: 20120403
  Serious: Yes (Other)
  Sender: FDA-Public Use
  Company Number: JP-SANOFI-AVENTIS-2011SA061090

PATIENT
  Age: 59 Year
  Sex: Female
  Weight: 54 kg

DRUGS (3)
  1. ASPIRIN [Concomitant]
  2. PLAVIX [Suspect]
     Route: 048
     Dates: start: 20110322, end: 20110622
  3. PLAVIX [Suspect]
     Route: 048
     Dates: start: 20110629

REACTIONS (3)
  - PARALYSIS [None]
  - HYPOAESTHESIA [None]
  - SWELLING [None]
